FAERS Safety Report 9718983 (Version 2)
Quarter: 2013Q4

REPORT INFORMATION
  Report Type: Spontaneous
  Country: US (occurrence: US)
  Receive Date: 20131127
  Receipt Date: 20131127
  Transmission Date: 20140711
  Serious: Yes (Other)
  Sender: FDA-Public Use
  Company Number: US-GE HEALTHCARE MEDICAL DIAGNOSTICS-OSCN-PR-0905S-0257

PATIENT
  Age: 54 Year
  Sex: Female

DRUGS (26)
  1. OMNISCAN [Suspect]
     Indication: PRODUCT USED FOR UNKNOWN INDICATION
     Route: 042
     Dates: start: 20030209, end: 20030209
  2. OMNISCAN [Suspect]
     Dates: start: 20040720, end: 20070720
  3. OMNISCAN [Suspect]
     Dates: start: 20061012, end: 20061012
  4. MAGNEVIST [Suspect]
     Indication: PRODUCT USED FOR UNKNOWN INDICATION
     Dates: start: 20040720, end: 20040720
  5. GADOLINIUM (UNSPECIFIED) [Suspect]
     Indication: PRODUCT USED FOR UNKNOWN INDICATION
     Dates: start: 20061012, end: 20061012
  6. GADOLINIUM (UNSPECIFIED) [Suspect]
     Indication: ANGIOGRAM
  7. ARANESP [Concomitant]
  8. NIFEDIPINE XL [Concomitant]
  9. METOPROLOL [Concomitant]
  10. LIPITOR [Concomitant]
  11. CALCITROL [Concomitant]
  12. CALCIUM ACETATE [Concomitant]
  13. CELEXA [Concomitant]
  14. PHOSLO [Concomitant]
  15. POLYSACCHARIDE-IRON COMPLEX [Concomitant]
  16. SODIUM BICARBONATE [Concomitant]
  17. VALCYTE [Concomitant]
  18. OMEPRAZOLE [Concomitant]
  19. DAPSONE [Concomitant]
  20. EPOGEN [Concomitant]
  21. DEPAKOTE [Concomitant]
  22. PROGRAF [Concomitant]
  23. RITUXIMAB [Concomitant]
     Dates: start: 20041101, end: 20041101
  24. RENAGEL [Concomitant]
  25. PSORLEN [Concomitant]
  26. AMBIEN [Concomitant]

REACTIONS (1)
  - Nephrogenic systemic fibrosis [Not Recovered/Not Resolved]
